FAERS Safety Report 12790312 (Version 1)
Quarter: 2016Q3

REPORT INFORMATION
  Report Type: Spontaneous
  Country: US (occurrence: US)
  Receive Date: 20160928
  Receipt Date: 20160928
  Transmission Date: 20161109
  Serious: Yes (Hospitalization)
  Sender: FDA-Public Use
  Company Number: US-RELYPSA-RLY2016002633

PATIENT
  Sex: Male

DRUGS (23)
  1. ZOFRAN [Concomitant]
     Active Substance: ONDANSETRON HYDROCHLORIDE
  2. OXYCODONE HYDROCHLORIDE. [Concomitant]
     Active Substance: OXYCODONE HYDROCHLORIDE
  3. MELATONIN [Concomitant]
     Active Substance: MELATONIN
  4. KIONEX [Concomitant]
     Active Substance: SODIUM POLYSTYRENE SULFONATE
  5. DIALYVITE [Concomitant]
     Active Substance: ASCORBIC ACID\BIOTIN\CALCIUM PANTOTHENATE\COBALAMIN\FOLIC ACID\NIACINAMIDE\PYRIDOXINE HYDROCHLORIDE\RIBOFLAVIN\THIAMINE MONONITRATE
  6. CITRUCEL [Concomitant]
     Active Substance: METHYLCELLULOSE (4000 MPA.S)
  7. VELTASSA [Suspect]
     Active Substance: PATIROMER
     Indication: HYPERKALAEMIA
     Dosage: 8.4 G, QD
     Route: 048
  8. VITAMIN D [Concomitant]
     Active Substance: CHOLECALCIFEROL
  9. NOVOLOG [Concomitant]
     Active Substance: INSULIN ASPART
  10. LEVEMIR [Concomitant]
     Active Substance: INSULIN DETEMIR
  11. ISOSORBIDE MONONITRATE. [Concomitant]
     Active Substance: ISOSORBIDE MONONITRATE
  12. CREON [Concomitant]
     Active Substance: PANCRELIPASE AMYLASE\PANCRELIPASE LIPASE\PANCRELIPASE PROTEASE
  13. SIMVASTATIN. [Concomitant]
     Active Substance: SIMVASTATIN
  14. NEOMYCIN [Concomitant]
     Active Substance: NEOMYCIN
  15. ASPIRIN. [Concomitant]
     Active Substance: ASPIRIN
  16. FERROUS SULFATE. [Concomitant]
     Active Substance: FERROUS SULFATE
  17. DIPHENOXYLATE/ATROPINE [Concomitant]
     Active Substance: ATROPINE\DIPHENOXYLATE
  18. CARVEDILOL. [Concomitant]
     Active Substance: CARVEDILOL
  19. LOPERAMIDE [Concomitant]
     Active Substance: LOPERAMIDE
  20. RENVELA [Concomitant]
     Active Substance: SEVELAMER CARBONATE
  21. AMLODIPINE BESYLATE. [Concomitant]
     Active Substance: AMLODIPINE BESYLATE
  22. LEVIN [Concomitant]
  23. DICYCLOMINE HCL [Concomitant]
     Active Substance: DICYCLOMINE HYDROCHLORIDE

REACTIONS (1)
  - Hospitalisation [Unknown]
